FAERS Safety Report 18760620 (Version 1)
Quarter: 2021Q1

REPORT INFORMATION
  Report Type: Spontaneous
  Country: US (occurrence: US)
  Receive Date: 20210119
  Receipt Date: 20210119
  Transmission Date: 20210419
  Serious: No
  Sender: FDA-Public Use
  Company Number: US-ROCHE-2476865

PATIENT
  Age: 31 Year
  Sex: Male

DRUGS (2)
  1. RITUXAN [Suspect]
     Active Substance: RITUXIMAB
     Indication: NEUROMYELITIS OPTICA SPECTRUM DISORDER
     Route: 042
     Dates: end: 20121201
  2. RITUXAN [Concomitant]
     Active Substance: RITUXIMAB

REACTIONS (4)
  - Intentional product use issue [Unknown]
  - Off label use [Unknown]
  - Urticaria [Unknown]
  - Dyspnoea [Unknown]
